FAERS Safety Report 11227318 (Version 3)
Quarter: 2015Q4

REPORT INFORMATION
  Report Type: Spontaneous
  Country: DE (occurrence: DE)
  Receive Date: 20150630
  Receipt Date: 20151202
  Transmission Date: 20160304
  Serious: Yes (Hospitalization, Other)
  Sender: FDA-Public Use
  Company Number: DE-ROCHE-1598707

PATIENT
  Age: 73 Year
  Sex: Male
  Weight: 65 kg

DRUGS (9)
  1. MABTHERA [Suspect]
     Active Substance: RITUXIMAB
     Route: 042
     Dates: end: 20150522
  2. ASPIRIN. [Concomitant]
     Active Substance: ASPIRIN
     Route: 065
  3. SIMVASTATIN. [Concomitant]
     Active Substance: SIMVASTATIN
  4. MABTHERA [Suspect]
     Active Substance: RITUXIMAB
     Indication: CHRONIC LYMPHOCYTIC LEUKAEMIA
     Route: 042
     Dates: start: 20141126, end: 20150107
  5. BENDAMUSTINE [Concomitant]
     Active Substance: BENDAMUSTINE
     Dosage: 5 CYLCES TOGETHER WITH RITUXIMAB
     Route: 065
     Dates: start: 201310, end: 201403
  6. ZYDELIG [Suspect]
     Active Substance: IDELALISIB
     Indication: CHRONIC LYMPHOCYTIC LEUKAEMIA
     Route: 048
     Dates: start: 201411, end: 20150522
  7. MABTHERA [Suspect]
     Active Substance: RITUXIMAB
     Route: 042
     Dates: start: 201310, end: 201403
  8. BENDAMUSTINE [Concomitant]
     Active Substance: BENDAMUSTINE
     Indication: CHRONIC LYMPHOCYTIC LEUKAEMIA
     Route: 065
     Dates: start: 200604, end: 200607
  9. IMMUNOGLOBULIN [Concomitant]
     Active Substance: HUMAN IMMUNOGLOBULIN G
     Route: 065
     Dates: start: 201311

REACTIONS (11)
  - Fall [Unknown]
  - Joint injury [Unknown]
  - Neurologic neglect syndrome [Recovering/Resolving]
  - Progressive multifocal leukoencephalopathy [Recovering/Resolving]
  - Visual field defect [Recovering/Resolving]
  - Pneumonia aspiration [Unknown]
  - JC virus test positive [Recovering/Resolving]
  - Blood creatine phosphokinase increased [Unknown]
  - Diarrhoea [Unknown]
  - Acute kidney injury [Unknown]
  - Anti-platelet antibody positive [Unknown]

NARRATIVE: CASE EVENT DATE: 201505
